FAERS Safety Report 9136882 (Version 1)
Quarter: 2013Q1

REPORT INFORMATION
  Report Type: Spontaneous
  Country: AR (occurrence: AR)
  Receive Date: 20130304
  Receipt Date: 20130304
  Transmission Date: 20140127
  Serious: Yes (Hospitalization, Other)
  Sender: FDA-Public Use
  Company Number: PHHY2013AR020990

PATIENT
  Sex: Female

DRUGS (2)
  1. DIOVAN D [Suspect]
     Indication: HYPERTENSION
     Dosage: 1 DF (160/12.5MG), DAILY
     Route: 048
  2. AMLODIPINE [Concomitant]
     Dosage: 5 UKN, UNK

REACTIONS (1)
  - Myocardial infarction [Recovered/Resolved]
